FAERS Safety Report 11203658 (Version 1)
Quarter: 2015Q2

REPORT INFORMATION
  Report Type: Spontaneous
  Country: US (occurrence: US)
  Receive Date: 20150619
  Receipt Date: 20150619
  Transmission Date: 20150821
  Serious: No
  Sender: FDA-Public Use
  Company Number: US-TEVA-567016USA

PATIENT
  Sex: Male
  Weight: 74.91 kg

DRUGS (1)
  1. PROAIR HFA [Suspect]
     Active Substance: ALBUTEROL SULFATE
     Indication: TOBACCO USER
     Dosage: INHALE 2 PUFFS BY MOUTH EVERY 6 HOURS IF NEEDED
     Route: 055

REACTIONS (3)
  - Product use issue [Unknown]
  - Pharyngeal disorder [Not Recovered/Not Resolved]
  - Upper-airway cough syndrome [Not Recovered/Not Resolved]

NARRATIVE: CASE EVENT DATE: 2015
